FAERS Safety Report 22601669 (Version 2)
Quarter: 2023Q2

REPORT INFORMATION
  Report Type: Spontaneous
  Country: US (occurrence: US)
  Receive Date: 20230614
  Receipt Date: 20230630
  Transmission Date: 20230721
  Serious: Yes (Hospitalization)
  Sender: FDA-Public Use
  Company Number: US-RIGEL Pharmaceuticals, INC-2023FOS000596

PATIENT
  Sex: Female

DRUGS (2)
  1. TAVALISSE [Suspect]
     Active Substance: FOSTAMATINIB
     Indication: Immune thrombocytopenia
     Dosage: 100 MG, BID
     Route: 048
  2. TAVALISSE [Suspect]
     Active Substance: FOSTAMATINIB
     Dosage: 150 MG, BID
     Route: 048

REACTIONS (8)
  - Immune thrombocytopenia [Unknown]
  - Hospitalisation [Unknown]
  - Cough [Unknown]
  - Pain [Unknown]
  - Back pain [Unknown]
  - Product dose omission issue [Unknown]
  - Dizziness [Unknown]
  - Rash erythematous [Recovered/Resolved]
